FAERS Safety Report 4424062-0 (Version None)
Quarter: 2004Q3

REPORT INFORMATION
  Report Type: 
  Country: None (occurrence: None)
  Receive Date: 20040806
  Receipt Date: 20040802
  Transmission Date: 20050211
  Serious: Yes (Hospitalization, Other)
  Sender: FDA-Public Use
  Company Number: FRWYE531023JAN04

PATIENT
  Age: 86 Year
  Sex: Female

DRUGS (7)
  1. EFFEXOR [Suspect]
     Dosage: LONG COURSE
     Route: 048
  2. CARDENSIEL (BISOPROLO) [Suspect]
     Dosage: ORAL    LONG COURSE
     Route: 048
  3. EPREX [Suspect]
     Dosage: 5000 IU 1X PER 1 WK SC
     Route: 058
     Dates: start: 20031027, end: 20031103
  4. FERROUS FUMARATE [Suspect]
     Dosage: 200 MG 1X PER 2 DAY ORAL
     Route: 048
     Dates: start: 20031027, end: 20031106
  5. ACETAMINOPHEN [Suspect]
     Indication: URINARY TRACT INFECTION
     Dosage: ORAL
     Route: 048
  6. TRAMADOL HCL [Suspect]
     Indication: URINARY TRACT INFECTION
     Dosage: ORAL     LONG COURSE
     Route: 048
  7. SPIRONOLACTONE [Concomitant]

REACTIONS (1)
  - DEEP VEIN THROMBOSIS [None]
